FAERS Safety Report 8366783-3 (Version None)
Quarter: 2012Q2

REPORT INFORMATION
  Report Type: 
  Country: None (occurrence: None)
  Receive Date: 20120517
  Receipt Date: 20120514
  Transmission Date: 20120825
  Serious: Yes (Hospitalization)
  Sender: FDA-Public Use
  Company Number: DE-ROCHE-1042519

PATIENT
  Sex: Female
  Weight: 76 kg

DRUGS (11)
  1. PACLITAXEL [Suspect]
     Dates: start: 20120508
  2. LAPATINIB [Suspect]
     Dosage: DAILY
     Dates: start: 20120228, end: 20120501
  3. HERCEPTIN [Suspect]
     Indication: BREAST CANCER
     Dosage: LAST DOSE PRIOR TO SAE: 14 FEB 2012
     Dates: start: 20120124, end: 20120221
  4. LAPATINIB [Suspect]
     Indication: BREAST CANCER
     Dosage: LAST DOSE PRIOR TO SAE: 20 FEB 2012
     Route: 048
     Dates: start: 20120124, end: 20120221
  5. LAPATINIB [Suspect]
     Dosage: DAILY
     Dates: start: 20120515
  6. HERCEPTIN [Suspect]
     Dosage: LAST DOSE PRIOR TO SAE: 17 APR 2012
     Dates: start: 20120228
  7. PACLITAXEL [Suspect]
     Dates: start: 20120228, end: 20120502
  8. PACLITAXEL [Suspect]
     Indication: BREAST CANCER
     Dosage: LAST DOSE PRIOR TO SAE: 24 APR 2012
     Dates: start: 20120124, end: 20120221
  9. DOXORUBICIN HYDROCHLORIDE [Suspect]
     Dosage: LAST DOSE PRIOR TO SAE: 24 APR 2012
     Dates: start: 20120508
  10. DOXORUBICIN HYDROCHLORIDE [Suspect]
     Indication: BREAST CANCER
     Dosage: LAST DOSE PRIOR TO SAE: 24 APR 2012
     Dates: start: 20120124, end: 20120221
  11. DOXORUBICIN HYDROCHLORIDE [Suspect]
     Dosage: LAST DOSE PRIOR TO SAE: 24 APR 2012
     Dates: start: 20120228, end: 20120502

REACTIONS (2)
  - PYREXIA [None]
  - GENERAL PHYSICAL HEALTH DETERIORATION [None]
